FAERS Safety Report 18694501 (Version 6)
Quarter: 2022Q1

REPORT INFORMATION
  Report Type: Spontaneous
  Country: US (occurrence: US)
  Receive Date: 20210104
  Receipt Date: 20220120
  Transmission Date: 20220424
  Serious: No
  Sender: FDA-Public Use
  Company Number: US-SA-2021SA001310

PATIENT
  Age: 61 Year
  Sex: Female

DRUGS (2)
  1. KEVZARA [Suspect]
     Active Substance: SARILUMAB
     Indication: Rheumatoid arthritis
     Dosage: 200 MG, QOW
     Route: 058
     Dates: start: 202012
  2. KEVZARA [Suspect]
     Active Substance: SARILUMAB
     Indication: Arthralgia

REACTIONS (5)
  - Nausea [Unknown]
  - Surgery [Recovering/Resolving]
  - Product use in unapproved indication [Unknown]
  - Intentional dose omission [Unknown]
  - Therapeutic procedure [Unknown]

NARRATIVE: CASE EVENT DATE: 20201201
